FAERS Safety Report 7159860-6 (Version None)
Quarter: 2010Q4

REPORT INFORMATION
  Report Type: 
  Country: None (occurrence: None)
  Receive Date: 20101214
  Receipt Date: 20101208
  Transmission Date: 20110411
  Serious: Yes (Other)
  Sender: FDA-Public Use
  Company Number: US-GENZYME-CAMP-1000420

PATIENT
  Sex: Male
  Weight: 83.129 kg

DRUGS (23)
  1. ALEMTUZUMAB [Suspect]
     Indication: MULTIPLE SCLEROSIS
     Dosage: 12 MG, QDX5
     Route: 042
     Dates: start: 20090914, end: 20090917
  2. ALEMTUZUMAB [Suspect]
     Dosage: 11 MG, QD
     Route: 042
     Dates: start: 20091014, end: 20091014
  3. ALEMTUZUMAB [Suspect]
     Dosage: 12 MG, QDX3
     Route: 042
     Dates: start: 20101110, end: 20101112
  4. NEURONTIN [Concomitant]
     Indication: FORMICATION
     Dosage: 900 MG, TID
     Route: 048
     Dates: start: 20060101
  5. TRAZODONE [Concomitant]
     Indication: INSOMNIA
     Dosage: 150 MG, QHS
     Route: 048
     Dates: start: 20070101
  6. ALPRAZOLAM [Concomitant]
     Indication: ANXIETY
     Dosage: 1 MG, BID
     Route: 048
     Dates: start: 20050101
  7. OXYBUTYNIN [Concomitant]
     Indication: URINARY INCONTINENCE
     Dosage: 5 MG, TID
     Route: 048
     Dates: start: 20070101
  8. OXYCODONE [Concomitant]
     Indication: NECK PAIN
     Dosage: 5 MG, PRN
     Route: 048
     Dates: start: 20080101
  9. OXYCODONE [Concomitant]
     Indication: PAIN IN EXTREMITY
  10. OXYCODONE [Concomitant]
  11. ZOLOFT [Concomitant]
     Indication: DEPRESSION
     Dosage: 200 MG, QD
     Route: 048
     Dates: start: 20060101
  12. PROVIGIL [Concomitant]
     Indication: FATIGUE
     Dosage: 400 MG, QD
     Route: 048
     Dates: start: 20060101
  13. BACLOFEN [Concomitant]
     Indication: MUSCLE SPASMS
     Dosage: 10 MG, QID
     Route: 048
     Dates: start: 20050101
  14. BACLOFEN [Concomitant]
  15. BACLOFEN [Concomitant]
  16. MULTI-VIT [Concomitant]
     Indication: MEDICAL DIET
     Dosage: 1 TAB, UNK
     Route: 008
     Dates: start: 20090823
  17. EFFEXOR XR [Concomitant]
     Indication: DEPRESSION
     Dosage: 37.5 MG, QD
     Route: 048
     Dates: start: 20090911
  18. CLARITIN [Concomitant]
     Indication: PROPHYLAXIS
     Dosage: 10 MG, PRN
     Route: 048
     Dates: start: 20090914
  19. ZANTAC [Concomitant]
     Indication: PROPHYLAXIS
     Dosage: 150 MG, PRN
     Route: 048
     Dates: start: 20090914
  20. BENADRYL [Concomitant]
     Indication: PROPHYLAXIS
     Dosage: 25 MG, PRN
     Route: 048
     Dates: start: 20090917
  21. ACYCLOVIR [Concomitant]
     Indication: PRODUCT USED FOR UNKNOWN INDICATION
     Dosage: 200 MG, BID
     Route: 048
     Dates: start: 20090914
  22. NITROGLYCERIN [Concomitant]
     Indication: ANGIOGRAM
     Dosage: 0.4 MCG, ONCE
     Route: 060
     Dates: start: 20090918, end: 20090918
  23. OPTIRAY 350 [Concomitant]
     Indication: ANGIOGRAM
     Dosage: 100 ML, ONCE
     Route: 042
     Dates: start: 20090918, end: 20090918

REACTIONS (8)
  - CHEST PAIN [None]
  - ELECTROCARDIOGRAM ST-T SEGMENT ABNORMAL [None]
  - JOINT SWELLING [None]
  - OEDEMA PERIPHERAL [None]
  - PLATELET COUNT DECREASED [None]
  - RASH [None]
  - RED BLOOD CELL COUNT DECREASED [None]
  - SKIN DISCOLOURATION [None]
